FAERS Safety Report 12980769 (Version 2)
Quarter: 2017Q2

REPORT INFORMATION
  Report Type: Spontaneous
  Country: US (occurrence: US)
  Receive Date: 20161128
  Receipt Date: 20170417
  Transmission Date: 20170830
  Serious: No
  Sender: FDA-Public Use
  Company Number: US-PFIZER INC-2016545917

PATIENT
  Sex: Female

DRUGS (2)
  1. XELJANZ [Suspect]
     Active Substance: TOFACITINIB CITRATE
     Dosage: 10 MG, 2X/DAY
     Route: 048
  2. XELJANZ [Suspect]
     Active Substance: TOFACITINIB CITRATE
     Dosage: 5 MG, 2X/DAY

REACTIONS (23)
  - Product use issue [Unknown]
  - Weight increased [Unknown]
  - Musculoskeletal stiffness [Unknown]
  - Anxiety [Unknown]
  - Pain [Unknown]
  - Fatigue [Unknown]
  - Infection [Unknown]
  - Weight decreased [Unknown]
  - Depressed mood [Unknown]
  - Joint swelling [Unknown]
  - Hypersensitivity [Unknown]
  - Hand deformity [Unknown]
  - Pain in extremity [Unknown]
  - Hot flush [Unknown]
  - Arthropathy [Unknown]
  - Tearfulness [Unknown]
  - Malaise [Unknown]
  - Back pain [Unknown]
  - Arthralgia [Unknown]
  - Nervousness [Unknown]
  - Insomnia [Unknown]
  - Muscular weakness [Unknown]
  - Blister [Unknown]
